FAERS Safety Report 11176745 (Version 1)
Quarter: 2015Q2

REPORT INFORMATION
  Report Type: Spontaneous
  Country: CA (occurrence: None)
  Receive Date: 20150608
  Receipt Date: 20150608
  Transmission Date: 20150821
  Serious: Yes (Hospitalization)
  Sender: FDA-Public Use
  Company Number: 1620016

PATIENT
  Age: 75 Year
  Sex: Male

DRUGS (3)
  1. ASENAPINE [Suspect]
     Active Substance: ASENAPINE
     Indication: BIPOLAR DISORDER
  2. VENLAFAXINE XR [Concomitant]
     Active Substance: VENLAFAXINE HYDROCHLORIDE
  3. LITHIUM. [Suspect]
     Active Substance: LITHIUM
     Indication: BIPOLAR DISORDER

REACTIONS (7)
  - Masked facies [None]
  - Facial paresis [None]
  - Dysphonia [None]
  - Nuclear magnetic resonance imaging brain abnormal [None]
  - Autoimmune disorder [None]
  - Eyelid ptosis [None]
  - Myasthenic syndrome [None]
